FAERS Safety Report 9458211 (Version 1)
Quarter: 2013Q3

REPORT INFORMATION
  Report Type: Spontaneous
  Country: US (occurrence: None)
  Receive Date: 20130812
  Receipt Date: 20130812
  Transmission Date: 20140515
  Serious: No
  Sender: FDA-Public Use
  Company Number: None

PATIENT
  Sex: Female

DRUGS (2)
  1. ENBREL 50MG AMGEN [Suspect]
     Dosage: 50MG QWK SQ
     Route: 058
  2. METFORMIN [Concomitant]

REACTIONS (1)
  - Skin cancer [None]
